FAERS Safety Report 5536688-1 (Version None)
Quarter: 2007Q4

REPORT INFORMATION
  Report Type: 
  Country: None (occurrence: None)
  Receive Date: 20071204
  Receipt Date: 20071128
  Transmission Date: 20080405
  Serious: Yes (Death)
  Sender: FDA-Public Use
  Company Number: 2007S1000286

PATIENT
  Age: 77 Year
  Sex: Male

DRUGS (3)
  1. SORIATANE [Suspect]
     Indication: SKIN CANCER
     Dosage: 10 MG;QD;PO, 25 MG;QD;PO, 10 MG;QD;PO
     Route: 048
  2. SORIATANE [Suspect]
     Indication: SKIN CANCER
     Dosage: 10 MG;QD;PO, 25 MG;QD;PO, 10 MG;QD;PO
     Route: 048
  3. SORIATANE [Suspect]
     Indication: SKIN CANCER
     Dosage: 10 MG;QD;PO, 25 MG;QD;PO, 10 MG;QD;PO
     Route: 048

REACTIONS (2)
  - RECURRENT CANCER [None]
  - VITH NERVE PARALYSIS [None]
